FAERS Safety Report 14252649 (Version 1)
Quarter: 2017Q4

REPORT INFORMATION
  Report Type: Spontaneous
  Country: US (occurrence: US)
  Receive Date: 20171205
  Receipt Date: 20171205
  Transmission Date: 20180321
  Serious: No
  Sender: FDA-Public Use
  Company Number: US-TEVA-753208USA

PATIENT
  Sex: Female

DRUGS (1)
  1. BUDESONIDE. [Suspect]
     Active Substance: BUDESONIDE
     Dosage: STRENGTH: 0.5 MG/2 ML
     Route: 055

REACTIONS (4)
  - Pulmonary pain [Unknown]
  - Product use issue [Unknown]
  - Asthenia [Unknown]
  - Liquid product physical issue [Unknown]
